FAERS Safety Report 15362388 (Version 2)
Quarter: 2020Q3

REPORT INFORMATION
  Report Type: Report from Study
  Country: AU (occurrence: AU)
  Receive Date: 20180907
  Receipt Date: 20180913
  Transmission Date: 20201105
  Serious: Yes (Hospitalization)
  Sender: FDA-Public Use
  Company Number: AU-ROCHE-2178770

PATIENT
  Age: 65 Year
  Sex: Female
  Weight: 48.9 kg

DRUGS (14)
  1. TELMISARTAN PLUS [Concomitant]
     Indication: HYPERTENSION
     Dosage: 40/12/5 MG
     Route: 048
     Dates: start: 201804, end: 20180807
  2. THYROXINE [Concomitant]
     Active Substance: LEVOTHYROXINE
     Indication: HYPOTHYROIDISM
     Route: 048
     Dates: start: 201307
  3. ATORVASTATIN [Concomitant]
     Active Substance: ATORVASTATIN
     Indication: HYPERLIPIDAEMIA
     Route: 048
     Dates: start: 20120605
  4. DENOSUMAB [Concomitant]
     Active Substance: DENOSUMAB
     Indication: METASTASES TO BONE
  5. CEFTRIAXONE. [Concomitant]
     Active Substance: CEFTRIAXONE
     Indication: LOWER RESPIRATORY TRACT INFECTION
     Route: 042
     Dates: start: 20180808, end: 20180809
  6. AUGMENTIN DUO FORTE [Concomitant]
     Active Substance: AMOXICILLIN\CLAVULANATE POTASSIUM
     Indication: LOWER RESPIRATORY TRACT INFECTION
     Dosage: 875/125 MG
     Route: 048
     Dates: start: 20180810
  7. LORATADINE. [Concomitant]
     Active Substance: LORATADINE
     Route: 048
     Dates: start: 20180823
  8. CLEXANE [Concomitant]
     Active Substance: ENOXAPARIN SODIUM
     Indication: THROMBOSIS PROPHYLAXIS
     Route: 058
     Dates: start: 20180808, end: 20180810
  9. LOPERAMIDE [Concomitant]
     Active Substance: LOPERAMIDE
     Route: 048
     Dates: start: 20180823
  10. ATEZOLIZUMAB. [Suspect]
     Active Substance: ATEZOLIZUMAB
     Indication: BREAST CANCER METASTATIC
     Dosage: DATE OF MOST RECENT DOSE: 27/AUG/2018
     Route: 042
     Dates: start: 20180813
  11. DENOSUMAB [Concomitant]
     Active Substance: DENOSUMAB
     Indication: BREAST CANCER
     Dosage: OTHER FREQUENCY
     Route: 058
     Dates: start: 2017
  12. MOMETASONE [Concomitant]
     Active Substance: MOMETASONE
     Indication: RASH
     Route: 061
     Dates: start: 20180823
  13. LORATADINE. [Concomitant]
     Active Substance: LORATADINE
     Indication: RASH
     Route: 048
     Dates: start: 20180823
  14. IPATASERTIB. [Suspect]
     Active Substance: IPATASERTIB
     Indication: BREAST CANCER METASTATIC
     Dosage: DATE OF MOST RECENT DOSE: 24/AUG/2018
     Route: 048
     Dates: start: 20180813

REACTIONS (1)
  - Pneumothorax [Not Recovered/Not Resolved]

NARRATIVE: CASE EVENT DATE: 20180830
